FAERS Safety Report 8772698 (Version 1)
Quarter: 2012Q4

REPORT INFORMATION
  Report Type: 
  Country: US (occurrence: US)
  Receive Date: 20120905
  Receipt Date: 20120905
  Transmission Date: 20130627
  Serious: No
  Sender: FDA-Public Use
  Company Number: US-JNJFOC-20120811222

PATIENT
  Age: 65 None
  Sex: Male
  Weight: 91.17 kg

DRUGS (9)
  1. FENTANYL TRANSDERMAL SYSTEM [Suspect]
     Indication: ARTHRALGIA
     Route: 062
     Dates: start: 201207
  2. NOVOLOG [Concomitant]
     Indication: DIABETES MELLITUS
     Route: 065
     Dates: start: 2006
  3. PRILOSEC [Concomitant]
     Indication: HYPERCHLORHYDRIA
     Route: 048
     Dates: start: 2010
  4. NIASPAN [Concomitant]
     Indication: HYPERCHOLESTEROLAEMIA
     Route: 048
     Dates: start: 2011
  5. MECLIZINE [Concomitant]
     Indication: DIZZINESS
     Dosage: 50 mg daily
     Route: 048
  6. FLUOXETINE [Concomitant]
     Indication: DEPRESSION
     Route: 048
  7. ATORVASTATIN [Concomitant]
     Indication: HYPERCHOLESTEROLAEMIA
     Route: 048
  8. GABAPENTIN [Concomitant]
     Indication: HYPOAESTHESIA
     Route: 048
     Dates: start: 2009
  9. METFORMIN [Concomitant]
     Indication: DIABETES MELLITUS
     Route: 048

REACTIONS (5)
  - Wrong technique in drug usage process [Not Recovered/Not Resolved]
  - Application site pruritus [Not Recovered/Not Resolved]
  - Inappropriate schedule of drug administration [Recovered/Resolved]
  - Pain [Not Recovered/Not Resolved]
  - Product quality issue [None]
